FAERS Safety Report 24707388 (Version 1)
Quarter: 2024Q4

REPORT INFORMATION
  Report Type: Spontaneous
  Country: IT (occurrence: IT)
  Receive Date: 20241206
  Receipt Date: 20241206
  Transmission Date: 20250115
  Serious: Yes (Other)
  Sender: INSUD PHARMA
  Company Number: IT-INSUD PHARMA-2411IT09315

PATIENT

DRUGS (1)
  1. NUVESSA [Suspect]
     Active Substance: METRONIDAZOLE
     Indication: Colitis ulcerative
     Dosage: 500 MILLIGRAM, TID
     Route: 048
     Dates: start: 2017

REACTIONS (10)
  - Linear IgA disease [Recovered/Resolved]
  - Dermatosis [Recovered/Resolved]
  - Pruritus [Recovered/Resolved]
  - Skin plaque [Recovered/Resolved]
  - Dermatitis bullous [Recovered/Resolved]
  - Dermatitis [Recovered/Resolved]
  - Skin erosion [Recovered/Resolved]
  - Scab [Recovered/Resolved]
  - Mucosa vesicle [Recovered/Resolved]
  - Oral mucosa erosion [Recovered/Resolved]

NARRATIVE: CASE EVENT DATE: 20170401
